FAERS Safety Report 9556444 (Version 1)
Quarter: 2013Q3

REPORT INFORMATION
  Report Type: Spontaneous
  Country: US (occurrence: None)
  Receive Date: 20130724
  Receipt Date: 20130724
  Transmission Date: 20140515
  Serious: Yes (Hospitalization, Other)
  Sender: FDA-Public Use
  Company Number: PHEH2012US024611

PATIENT
  Sex: Male
  Weight: 74.8 kg

DRUGS (1)
  1. GILENYA [Suspect]
     Route: 048
     Dates: start: 20121011

REACTIONS (6)
  - Multiple sclerosis relapse [None]
  - Weight decreased [None]
  - Gait disturbance [None]
  - Speech disorder [None]
  - Asthenia [None]
  - Dyspnoea [None]
